FAERS Safety Report 9716999 (Version 1)
Quarter: 2013Q4

REPORT INFORMATION
  Report Type: Spontaneous
  Country: US (occurrence: US)
  Receive Date: 20131127
  Receipt Date: 20131127
  Transmission Date: 20140711
  Serious: No
  Sender: FDA-Public Use
  Company Number: US-GILEAD-2009-0020251

PATIENT
  Sex: Male
  Weight: 93.89 kg

DRUGS (9)
  1. LETAIRIS [Suspect]
     Indication: PULMONARY ARTERIAL HYPERTENSION
     Route: 048
     Dates: start: 20090123
  2. COUMADIN [Concomitant]
  3. AVALIDE [Concomitant]
  4. ADVAIR [Concomitant]
  5. LOPID [Concomitant]
  6. POTASSIUM CHLORIDE [Concomitant]
  7. CENTRUM [Concomitant]
  8. TIMOLOL EYE DROPS [Concomitant]
  9. DANDELION ROOT [Concomitant]

REACTIONS (1)
  - Dyspnoea [Unknown]
